FAERS Safety Report 4558270-5 (Version None)
Quarter: 2005Q1

REPORT INFORMATION
  Report Type: 
  Country: None (occurrence: None)
  Receive Date: 20050103
  Receipt Date: 20041021
  Transmission Date: 20050727
  Serious: Yes (Other)
  Sender: FDA-Public Use
  Company Number: 2004UW21922

PATIENT
  Age: 80 Year
  Sex: Female
  Weight: 72.121 kg

DRUGS (4)
  1. CRESTOR [Suspect]
     Indication: HYPERCHOLESTEROLAEMIA
     Dosage: 10 MG QD PO
     Route: 048
  2. DIOVAN [Concomitant]
  3. ZIAC [Concomitant]
  4. INSULIN [Concomitant]

REACTIONS (1)
  - HYPERHIDROSIS [None]
